FAERS Safety Report 8922342 (Version 1)
Quarter: 2012Q4

REPORT INFORMATION
  Report Type: 
  Country: US (occurrence: US)
  Receive Date: 20121123
  Receipt Date: 20121123
  Transmission Date: 20130627
  Serious: Yes (Other)
  Sender: FDA-Public Use
  Company Number: US-JNJFOC-20121109172

PATIENT
  Sex: Male

DRUGS (8)
  1. TYLENOL [Suspect]
     Indication: HEADACHE
     Route: 065
     Dates: end: 201204
  2. TYLENOL [Suspect]
     Indication: PREMEDICATION
     Route: 065
     Dates: end: 201204
  3. IBUPROFEN [Suspect]
     Indication: HEADACHE
     Route: 065
     Dates: end: 201204
  4. IBUPROFEN [Suspect]
     Indication: PREMEDICATION
     Route: 065
     Dates: end: 201204
  5. REBIF [Suspect]
     Indication: MULTIPLE SCLEROSIS
     Route: 058
     Dates: start: 201204
  6. REBIF [Suspect]
     Indication: MULTIPLE SCLEROSIS
     Route: 058
     Dates: start: 20110311, end: 201204
  7. ALEVE [Suspect]
     Indication: HEADACHE
     Route: 065
     Dates: end: 201204
  8. ALEVE [Suspect]
     Indication: PREMEDICATION
     Route: 065
     Dates: end: 201204

REACTIONS (6)
  - Liver function test abnormal [Recovered/Resolved]
  - Alanine aminotransferase increased [None]
  - Malaise [None]
  - Headache [None]
  - Feeling hot [None]
  - Multiple sclerosis [None]
